FAERS Safety Report 7127856-6 (Version None)
Quarter: 2010Q4

REPORT INFORMATION
  Report Type: 
  Country: None (occurrence: None)
  Receive Date: 20101029
  Receipt Date: 20100722
  Transmission Date: 20110411
  Serious: No
  Sender: FDA-Public Use
  Company Number: US-003320

PATIENT
  Sex: Male
  Weight: 90.2658 kg

DRUGS (7)
  1. FIRMAGON [Suspect]
     Indication: PROSTATE CANCER
     Dosage: 240 MG 1X SUBCUTANEOUS, 80 MG 1X SUBCUTANEOUS, 80 MG 1X SUBCUTANEOUS
     Route: 058
     Dates: start: 20100517, end: 20100517
  2. FIRMAGON [Suspect]
     Indication: PROSTATE CANCER
     Dosage: 240 MG 1X SUBCUTANEOUS, 80 MG 1X SUBCUTANEOUS, 80 MG 1X SUBCUTANEOUS
     Route: 058
     Dates: start: 20100617
  3. FIRMAGON [Suspect]
     Indication: PROSTATE CANCER
     Dosage: 240 MG 1X SUBCUTANEOUS, 80 MG 1X SUBCUTANEOUS, 80 MG 1X SUBCUTANEOUS
     Route: 058
     Dates: start: 20100717
  4. LISINOPRIL [Concomitant]
  5. ORPHENADRINE CITRATE [Concomitant]
  6. CHEMOTHERAPEUTICS [Concomitant]
  7. PREDNISONE [Concomitant]

REACTIONS (2)
  - INJECTION SITE PAIN [None]
  - SKIN NODULE [None]
